FAERS Safety Report 9714009 (Version 1)
Quarter: 2013Q4

REPORT INFORMATION
  Report Type: Spontaneous
  Country: US (occurrence: US)
  Receive Date: 20131126
  Receipt Date: 20131126
  Transmission Date: 20140711
  Serious: No
  Sender: FDA-Public Use
  Company Number: US-GILEAD-2008-0018562

PATIENT
  Sex: Female
  Weight: 85.27 kg

DRUGS (11)
  1. LETAIRIS [Suspect]
     Indication: PULMONARY ARTERIAL HYPERTENSION
     Route: 048
     Dates: start: 20080829
  2. ALBUTEROL [Concomitant]
  3. ASPIRIN [Concomitant]
  4. LASIX [Concomitant]
  5. PRILOSEC [Concomitant]
  6. LANTUS [Concomitant]
  7. CITALOPRAM HBR [Concomitant]
  8. MULTIVITAMIN [Concomitant]
  9. FOLTRIN [Concomitant]
  10. MAG-OX [Concomitant]
  11. CENTRUM SILVER [Concomitant]

REACTIONS (1)
  - Nasal congestion [None]
